FAERS Safety Report 12289306 (Version 1)
Quarter: 2016Q2

REPORT INFORMATION
  Report Type: Spontaneous
  Country: FR (occurrence: None)
  Receive Date: 20160420
  Receipt Date: 20160420
  Transmission Date: 20160815
  Serious: Yes (Hospitalization)
  Sender: FDA-Public Use
  Company Number: None

PATIENT
  Age: 32 Year
  Sex: Male
  Weight: 63 kg

DRUGS (5)
  1. HALDOL [Suspect]
     Active Substance: HALOPERIDOL
     Indication: SCHIZOPHRENIA
     Dosage: ONCE PER MONTH, INTO THE MUSCLE
     Route: 030
     Dates: start: 20110406
  2. ACORUS CALAMUS [Concomitant]
  3. ABILIFY [Concomitant]
     Active Substance: ARIPIPRAZOLE
  4. TERCIAN [Concomitant]
     Active Substance: CYAMEMAZINE
  5. GINGKO [Concomitant]
     Active Substance: GINKGO

REACTIONS (2)
  - Thinking abnormal [None]
  - Mental impairment [None]

NARRATIVE: CASE EVENT DATE: 20141120
